FAERS Safety Report 8245472-X (Version None)
Quarter: 2012Q1

REPORT INFORMATION
  Report Type: 
  Country: None (occurrence: None)
  Receive Date: 20120329
  Receipt Date: 20120328
  Transmission Date: 20120608
  Serious: Yes (Other)
  Sender: FDA-Public Use
  Company Number: JP-MERCK-1203USA01279

PATIENT
  Age: 30 Year
  Sex: Female

DRUGS (3)
  1. HORMONAL CONTRACEPTIVES (UNSPECIFIED) [Suspect]
     Route: 048
  2. DECADRON [Suspect]
     Indication: THROMBOCYTOPENIC PURPURA
     Route: 048
  3. DECADRON [Suspect]
     Route: 048

REACTIONS (1)
  - RETINAL VEIN OCCLUSION [None]
